FAERS Safety Report 6552962-4 (Version None)
Quarter: 2010Q1

REPORT INFORMATION
  Report Type: 
  Country: None (occurrence: None)
  Receive Date: 20100127
  Receipt Date: 20100120
  Transmission Date: 20100710
  Serious: Yes (Other)
  Sender: FDA-Public Use
  Company Number: US-ASTRAZENECA-2009UW03038

PATIENT
  Age: 25 Year
  Sex: Male
  Weight: 86.2 kg

DRUGS (31)
  1. SEROQUEL [Suspect]
     Route: 048
     Dates: start: 20020101, end: 20060101
  2. SEROQUEL [Suspect]
     Dosage: PRN, 25 TO 100 MG BID
     Route: 048
     Dates: start: 20041123, end: 20041123
  3. SEROQUEL [Suspect]
     Route: 048
     Dates: start: 20050219
  4. SEROQUEL [Suspect]
     Route: 048
  5. SEROQUEL [Suspect]
     Dosage: 200MG- 400 MG
     Route: 048
     Dates: start: 20060308
  6. PAXIL [Concomitant]
     Dates: start: 20041123, end: 20050103
  7. ATIVAN [Concomitant]
  8. CYMBALTA [Concomitant]
     Indication: BIPOLAR I DISORDER
     Route: 048
     Dates: start: 20060621
  9. CYMBALTA [Concomitant]
     Route: 048
     Dates: start: 20061114
  10. TRAZODONE [Concomitant]
     Indication: SLEEP DISORDER
     Route: 048
     Dates: start: 20061114
  11. RISPERDAL [Concomitant]
     Indication: SCHIZOAFFECTIVE DISORDER
     Route: 048
     Dates: start: 20060718
  12. RISPERDAL [Concomitant]
     Dosage: 1/2 TABLET AT NIGHT AND 1/2 TABLET DAYTIME
     Dates: start: 20090216
  13. RISPERDAL [Concomitant]
     Route: 048
     Dates: start: 20061114
  14. LEXAPRO [Concomitant]
  15. KLONOPIN [Concomitant]
     Indication: GENERALISED ANXIETY DISORDER
     Dosage: 1 MG, 2 MG
     Dates: start: 20041230
  16. KLONOPIN [Concomitant]
     Dosage: 1 MG TABLET DOSE 1.5 FREQUENCY TID
     Route: 048
     Dates: start: 20060621
  17. KLONOPIN [Concomitant]
     Route: 048
     Dates: start: 20061114
  18. XANAX [Concomitant]
     Dosage: 0.5 MG, 1MG
     Dates: start: 20050219
  19. XANAX [Concomitant]
     Dates: end: 20050103
  20. XANAX [Concomitant]
     Dates: start: 20090216
  21. GABAPENTIN [Concomitant]
     Dates: start: 20090216
  22. PROPRANOLOL [Concomitant]
     Dates: start: 20090216
  23. LAMICTAL [Concomitant]
     Dosage: 1/2 TABLET IN MORNING AND 1 TABLET AT BED
  24. BACLOFEN [Concomitant]
     Dates: start: 20090216
  25. OXYCODONE [Concomitant]
     Dates: start: 20090216
  26. FENOFIBRATE [Concomitant]
     Dates: start: 20090216
  27. FLEXERIL [Concomitant]
     Indication: BACK PAIN
     Route: 048
     Dates: start: 20060621
  28. COGENTIN [Concomitant]
     Route: 048
     Dates: start: 20060222
  29. ABILIFY [Concomitant]
  30. GEODON [Concomitant]
  31. THORAZINE [Concomitant]

REACTIONS (6)
  - CONVULSION [None]
  - DIABETES MELLITUS [None]
  - INSOMNIA [None]
  - LOSS OF CONSCIOUSNESS [None]
  - SUICIDAL IDEATION [None]
  - TYPE 2 DIABETES MELLITUS [None]
